FAERS Safety Report 5792641-4 (Version None)
Quarter: 2008Q2

REPORT INFORMATION
  Report Type: 
  Country: None (occurrence: None)
  Receive Date: 20080626
  Receipt Date: 20080611
  Transmission Date: 20081010
  Serious: Yes (Other)
  Sender: FDA-Public Use
  Company Number: FR-PFIZER INC-2008052666

PATIENT
  Age: 78 Year
  Sex: Female

DRUGS (2)
  1. ZYVOXID TABLET [Suspect]
     Route: 048
     Dates: start: 20061127, end: 20061128
  2. ZOLPIDEM [Interacting]
     Indication: INITIAL INSOMNIA
     Route: 048

REACTIONS (2)
  - DRUG INTERACTION [None]
  - HYPERSENSITIVITY [None]
